FAERS Safety Report 15708112 (Version 1)
Quarter: 2018Q4

REPORT INFORMATION
  Report Type: Report from Study
  Country: None (occurrence: DE)
  Receive Date: 20181211
  Receipt Date: 20181211
  Transmission Date: 20190205
  Serious: Yes (Hospitalization)
  Sender: FDA-Public Use
  Company Number: DE-ABBVIE-18K-062-2580187-00

PATIENT
  Age: 75 Year
  Sex: Male
  Weight: 81 kg

DRUGS (13)
  1. CETRIZIN [Concomitant]
     Indication: PRODUCT USED FOR UNKNOWN INDICATION
     Dates: start: 20180917, end: 20180924
  2. CYCLOPHOSPHAMID [Concomitant]
     Active Substance: CYCLOPHOSPHAMIDE
     Indication: PRODUCT USED FOR UNKNOWN INDICATION
     Dates: start: 20170713, end: 20171027
  3. MAVIRET [Suspect]
     Active Substance: GLECAPREVIR\PIBRENTASVIR
     Indication: CHRONIC HEPATITIS C
     Route: 048
     Dates: start: 20180905, end: 20181031
  4. PREDNISOLON [Concomitant]
     Active Substance: PREDNISOLONE
     Indication: PRODUCT USED FOR UNKNOWN INDICATION
     Dates: start: 20180924, end: 20181006
  5. VINCRISTIN [Concomitant]
     Active Substance: VINCRISTINE
     Indication: PRODUCT USED FOR UNKNOWN INDICATION
     Dates: start: 20170713, end: 20171027
  6. CYCLOPHOSPHAMID [Concomitant]
     Active Substance: CYCLOPHOSPHAMIDE
     Route: 062
     Dates: start: 20180924, end: 20181006
  7. L-THYROXIN [Concomitant]
     Active Substance: LEVOTHYROXINE SODIUM
     Indication: PRODUCT USED FOR UNKNOWN INDICATION
     Dates: start: 2013
  8. RITUXIMAB. [Concomitant]
     Active Substance: RITUXIMAB
     Route: 062
     Dates: start: 20180924, end: 20181006
  9. VINCRISTIN [Concomitant]
     Active Substance: VINCRISTINE
     Route: 062
     Dates: start: 20180924, end: 20181006
  10. PREDNISONE. [Concomitant]
     Active Substance: PREDNISONE
     Route: 062
     Dates: start: 20180924, end: 20181006
  11. PREDNISOLON [Concomitant]
     Active Substance: PREDNISOLONE
     Route: 062
     Dates: start: 20180924, end: 20181006
  12. RITUXIMAB. [Concomitant]
     Active Substance: RITUXIMAB
     Indication: PRODUCT USED FOR UNKNOWN INDICATION
     Dates: start: 20170713, end: 20171027
  13. PREDNISONE. [Concomitant]
     Active Substance: PREDNISONE
     Indication: PRODUCT USED FOR UNKNOWN INDICATION
     Dates: start: 20170713, end: 20171027

REACTIONS (5)
  - B-cell lymphoma recurrent [Recovered/Resolved]
  - Eye infection [Unknown]
  - Conjunctivitis [Unknown]
  - Lymphoedema [Unknown]
  - Swelling [Unknown]

NARRATIVE: CASE EVENT DATE: 2018
